FAERS Safety Report 8710467 (Version 2)
Quarter: 2012Q4

REPORT INFORMATION
  Report Type: Spontaneous
  Country: IT (occurrence: None)
  Receive Date: 20120723
  Receipt Date: 20121126
  Transmission Date: 20130627
  Serious: Yes (Other)
  Sender: FDA-Public Use
  Company Number: 2012IT0239

PATIENT
  Age: 28 Year
  Sex: Male

DRUGS (5)
  1. ANAKINRA [Suspect]
     Indication: SYSTEMIC ONSET JUVENILE IDIOPATHIC ARTHRITIS
     Dosage: 100 MG (100 MG, 1 IN 1 D)
     Route: 058
     Dates: start: 20120529
  2. INFLIXIMAB (INFLIXIMAB) [Concomitant]
  3. DELTA-CORTEF [Concomitant]
  4. IG (IMMUNOGLOBULINS) [Concomitant]
  5. BACTRIM (SULFAMETOXAZOLE, TRIMETHOPRIM) [Concomitant]

REACTIONS (1)
  - Histiocytosis haematophagic [None]
